FAERS Safety Report 7941720-1 (Version None)
Quarter: 2011Q4

REPORT INFORMATION
  Report Type: 
  Country: None (occurrence: None)
  Receive Date: 20111128
  Receipt Date: 20111117
  Transmission Date: 20120403
  Serious: Yes (Death)
  Sender: FDA-Public Use
  Company Number: US-UCBSA-043706

PATIENT
  Age: 21 Year
  Sex: Male

DRUGS (1)
  1. KEPPRA XR [Suspect]

REACTIONS (1)
  - CONVULSION [None]
